FAERS Safety Report 17205577 (Version 1)
Quarter: 2019Q4

REPORT INFORMATION
  Report Type: Spontaneous
  Country: US (occurrence: US)
  Receive Date: 20191227
  Receipt Date: 20191227
  Transmission Date: 20200122
  Serious: No
  Sender: FDA-Public Use
  Company Number: US-009507513-1911USA012292

PATIENT
  Sex: Female

DRUGS (1)
  1. NUVARING [Suspect]
     Active Substance: ETHINYL ESTRADIOL\ETONOGESTREL
     Dosage: ONE RING
     Route: 067

REACTIONS (4)
  - Device expulsion [Unknown]
  - Inappropriate schedule of product administration [Unknown]
  - Vaginal haemorrhage [Unknown]
  - Muscle spasms [Unknown]
